FAERS Safety Report 7583702-8 (Version None)
Quarter: 2011Q2

REPORT INFORMATION
  Report Type: 
  Country: None (occurrence: None)
  Receive Date: 20110630
  Receipt Date: 20110621
  Transmission Date: 20111010
  Serious: Yes (Hospitalization)
  Sender: FDA-Public Use
  Company Number: B0727478A

PATIENT
  Age: 26 Year
  Sex: Female

DRUGS (6)
  1. FENTANYL [Concomitant]
     Route: 042
  2. DEXAMETHASONE [Concomitant]
     Indication: PROPHYLAXIS
     Route: 065
  3. PROPOFOL [Concomitant]
     Route: 042
  4. SEVOFLURANE [Concomitant]
     Route: 065
  5. ONDANSETRON [Suspect]
     Indication: NAUSEA
     Route: 065
  6. ONDANSETRON [Suspect]
     Indication: VOMITING
     Route: 065

REACTIONS (1)
  - MIGRAINE [None]
